FAERS Safety Report 15887937 (Version 1)
Quarter: 2019Q1

REPORT INFORMATION
  Report Type: Other
  Country: US (occurrence: US)
  Receive Date: 20190130
  Receipt Date: 20190130
  Transmission Date: 20190417
  Serious: Yes (Other)
  Sender: FDA-Public Use
  Company Number: US-GUARDIAN DRUG COMPANY-2061911

PATIENT
  Age: 12 Year
  Sex: Female

DRUGS (1)
  1. CHILDRENS IBUPROFEN [Suspect]
     Active Substance: IBUPROFEN
     Indication: HEADACHE
     Route: 065

REACTIONS (3)
  - Tubulointerstitial nephritis and uveitis syndrome [Recovering/Resolving]
  - Drug abuse [Unknown]
  - Product use in unapproved indication [Unknown]
